FAERS Safety Report 16725490 (Version 1)
Quarter: 2019Q4

REPORT INFORMATION
  Report Type: Spontaneous
  Country: US (occurrence: US)
  Receive Date: 20190820
  Receipt Date: 20190820
  Transmission Date: 20200122
  Serious: Yes (Disabling)
  Sender: FDA-Public Use
  Company Number: None

PATIENT
  Age: 62 Year
  Sex: Female
  Weight: 58.5 kg

DRUGS (1)
  1. EQUATE SUPPORT ADVANCED LUBRICANT DROPS MULTIDOSE [Suspect]
     Active Substance: POLYETHYLENE GLYCOL 400\PROPYLENE GLYCOL
     Indication: DRY EYE
     Dosage: ?          QUANTITY:.25 OUNCE(S);?
     Route: 047
     Dates: start: 20190624, end: 20190702

REACTIONS (4)
  - Instillation site pain [None]
  - Instillation site infection [None]
  - Recalled product administered [None]
  - Insurance issue [None]

NARRATIVE: CASE EVENT DATE: 20190702
